FAERS Safety Report 20421808 (Version 2)
Quarter: 2022Q1

REPORT INFORMATION
  Report Type: Report from Study
  Country: IT (occurrence: IT)
  Receive Date: 20220203
  Receipt Date: 20220208
  Transmission Date: 20220423
  Serious: Yes (Death, Life-Threatening, Hospitalization, Other)
  Sender: FDA-Public Use
  Company Number: IT-BRISTOL-MYERS SQUIBB COMPANY-BMS-2022-015281

PATIENT
  Age: 66 Year
  Sex: Male

DRUGS (10)
  1. NIVOLUMAB [Suspect]
     Active Substance: NIVOLUMAB
     Indication: Squamous cell carcinoma of lung
     Dosage: 360 MILLIGRAM
     Route: 042
     Dates: start: 20220112, end: 20220112
  2. CARBOPLATIN [Suspect]
     Active Substance: CARBOPLATIN
     Indication: Squamous cell carcinoma of lung
     Dosage: 398 MILLIGRAM
     Route: 042
     Dates: start: 20220112, end: 20220112
  3. GEMCITABINE [Suspect]
     Active Substance: GEMCITABINE
     Indication: Squamous cell carcinoma of lung
     Dosage: 1000 MILLIGRAM ON DAY 1 AND DAY 8
     Route: 042
     Dates: start: 20220112
  4. COVID-19 VACCINE NOS [Suspect]
     Active Substance: COVID-19 VACCINE NOS
     Indication: Product used for unknown indication
     Dosage: UNK
     Route: 065
     Dates: start: 20220127
  5. ACETAMINOPHEN [Concomitant]
     Active Substance: ACETAMINOPHEN
     Indication: Product used for unknown indication
     Dosage: UNK
     Route: 065
     Dates: start: 20220115, end: 20220130
  6. PREDNISONE [Concomitant]
     Active Substance: PREDNISONE
     Indication: Product used for unknown indication
     Dosage: 5 MILLIGRAM
     Route: 065
     Dates: start: 20220119, end: 20220130
  7. CARDIOASPIRINA [Concomitant]
     Active Substance: ASPIRIN
     Indication: Product used for unknown indication
     Route: 065
  8. BISOPROLOL [Concomitant]
     Active Substance: BISOPROLOL
     Indication: Product used for unknown indication
     Route: 065
  9. SIVACOR [Concomitant]
     Indication: Product used for unknown indication
     Dosage: UNK
     Route: 065
  10. RANEXA [RANOLAZINE] [Concomitant]
     Indication: Product used for unknown indication
     Dosage: UNK
     Route: 065

REACTIONS (2)
  - Pyrexia [Fatal]
  - Respiratory distress [Fatal]

NARRATIVE: CASE EVENT DATE: 20220127
